FAERS Safety Report 9483689 (Version 1)
Quarter: 2013Q3

REPORT INFORMATION
  Report Type: Report from Study
  Country: CA (occurrence: CA)
  Receive Date: 20130828
  Receipt Date: 20130828
  Transmission Date: 20140515
  Serious: Yes (Other)
  Sender: FDA-Public Use
  Company Number: CA-JNJFOC-20130814097

PATIENT
  Age: 63 Year
  Sex: Female
  Weight: 56.5 kg

DRUGS (1)
  1. REMICADE [Suspect]
     Indication: CROHN^S DISEASE
     Route: 042
     Dates: start: 20101119

REACTIONS (4)
  - Loss of consciousness [Recovered/Resolved]
  - Blood pressure decreased [Unknown]
  - Vomiting [Unknown]
  - Fatigue [Unknown]
